FAERS Safety Report 9390338 (Version 5)
Quarter: 2014Q1

REPORT INFORMATION
  Report Type: Report from Study
  Country: JP (occurrence: JP)
  Receive Date: 20130709
  Receipt Date: 20140321
  Transmission Date: 20141002
  Serious: Yes (Other)
  Sender: FDA-Public Use
  Company Number: JP-ROCHE-1246009

PATIENT
  Age: 76 Year
  Sex: Female

DRUGS (7)
  1. RANIBIZUMAB [Suspect]
     Indication: AGE-RELATED MACULAR DEGENERATION
     Route: 050
     Dates: start: 20110324
  2. RANIBIZUMAB [Suspect]
     Route: 050
     Dates: start: 20110908
  3. RANIBIZUMAB [Suspect]
     Route: 050
     Dates: start: 20120523, end: 20120523
  4. VISUDYNE [Concomitant]
     Indication: AGE-RELATED MACULAR DEGENERATION
     Route: 042
     Dates: start: 200803, end: 20120527
  5. OFLOXACIN [Concomitant]
     Route: 065
     Dates: start: 201103, end: 201103
  6. TAPROS [Concomitant]
     Indication: GLAUCOMA
     Route: 065
     Dates: start: 20100513
  7. HYALURONATE SODIUM [Concomitant]
     Route: 065
     Dates: start: 20130124

REACTIONS (1)
  - Visual acuity reduced [Not Recovered/Not Resolved]
